FAERS Safety Report 8511937-6 (Version None)
Quarter: 2012Q3

REPORT INFORMATION
  Report Type: 
  Country: None (occurrence: None)
  Receive Date: 20120716
  Receipt Date: 20120702
  Transmission Date: 20120928
  Serious: No
  Sender: FDA-Public Use
  Company Number: US-ASTRAZENECA-2012SE45220

PATIENT
  Age: 51 Year
  Sex: Female

DRUGS (4)
  1. NEXIUM [Suspect]
     Route: 048
  2. RHINOCORT [Suspect]
     Route: 045
  3. SYMBICORT [Suspect]
     Dosage: 160/4.5 MCG, DAILY
     Route: 055
  4. ACCOLATE [Suspect]
     Route: 048

REACTIONS (2)
  - ASTHMA [None]
  - MULTIPLE ALLERGIES [None]
